FAERS Safety Report 18449268 (Version 1)
Quarter: 2020Q4

REPORT INFORMATION
  Report Type: Spontaneous
  Country: NL (occurrence: NL)
  Receive Date: 20201102
  Receipt Date: 20201102
  Transmission Date: 20210114
  Serious: Yes (Hospitalization)
  Sender: FDA-Public Use
  Company Number: NL-ACCORD-206994

PATIENT
  Age: 76 Year
  Sex: Female

DRUGS (9)
  1. ISOSORBIDE. [Concomitant]
     Active Substance: ISOSORBIDE
     Dosage: STRENGTH:30MG
  2. PRADAXA [Concomitant]
     Active Substance: DABIGATRAN ETEXILATE MESYLATE
     Dosage: STRENGTH:110 MG
  3. MACROGOL/MACROGOL STEARATE [Concomitant]
     Active Substance: POLYETHYLENE GLYCOLS
     Dosage: STRENGTH:10G
  4. FOLIC ACID. [Concomitant]
     Active Substance: FOLIC ACID
     Dosage: STRENGTH:5MG
  5. VENTOLIN [Concomitant]
     Active Substance: ALBUTEROL SULFATE
     Dosage: STRENGTH:200 MCG 60 DO
  6. METFORMIN [Concomitant]
     Active Substance: METFORMIN HYDROCHLORIDE
     Dosage: STRENGTH:500MG
  7. FLECAINIDE [Concomitant]
     Active Substance: FLECAINIDE
     Dosage: STRENGTH:50MG
  8. METHOTREXATE. [Suspect]
     Active Substance: METHOTREXATE
     Indication: RHEUMATOID ARTHRITIS
     Dosage: STRENGTH:2.5MG,1X PER WEEK 6 TABL OF 2.5MG
     Dates: start: 20200603
  9. ETORICOXIB. [Concomitant]
     Active Substance: ETORICOXIB
     Dosage: STRENGTH:60MG

REACTIONS (4)
  - Dyspepsia [Recovered/Resolved]
  - Depressed level of consciousness [Recovered/Resolved]
  - Dizziness [Recovered/Resolved]
  - Nausea [Recovered/Resolved]

NARRATIVE: CASE EVENT DATE: 20200603
